FAERS Safety Report 7807876-6 (Version None)
Quarter: 2011Q4

REPORT INFORMATION
  Report Type: 
  Country: None (occurrence: None)
  Receive Date: 20111011
  Receipt Date: 20110929
  Transmission Date: 20120403
  Serious: Yes (Other)
  Sender: FDA-Public Use
  Company Number: IT-CELGENEUS-083-21880-11091820

PATIENT
  Sex: Male
  Weight: 87 kg

DRUGS (3)
  1. REVLIMID [Suspect]
     Route: 048
     Dates: start: 20100907, end: 20100920
  2. FLUDARABINE PHOSPHATE [Suspect]
     Route: 041
     Dates: start: 20100907, end: 20100909
  3. CYCLOPHOSPHAMIDE [Suspect]
     Route: 041
     Dates: start: 20100907, end: 20100909

REACTIONS (1)
  - SQUAMOUS CELL CARCINOMA OF SKIN [None]
